FAERS Safety Report 16125897 (Version 2)
Quarter: 2019Q3

REPORT INFORMATION
  Report Type: Spontaneous
  Country: US (occurrence: US)
  Receive Date: 20190328
  Receipt Date: 20190927
  Transmission Date: 20191004
  Serious: No
  Sender: FDA-Public Use
  Company Number: US-SHIRE-US201910061

PATIENT
  Age: 75 Year
  Sex: Female
  Weight: 48.98 kg

DRUGS (1)
  1. GATTEX [Suspect]
     Active Substance: TEDUGLUTIDE\WATER
     Indication: SHORT-BOWEL SYNDROME
     Dosage: 0.2250 UNK, 1X/DAY:QD
     Route: 058
     Dates: start: 20180531

REACTIONS (3)
  - Ill-defined disorder [Unknown]
  - Product dose omission [Not Recovered/Not Resolved]
  - Needle issue [Unknown]

NARRATIVE: CASE EVENT DATE: 20190923
